FAERS Safety Report 20086443 (Version 1)
Quarter: 2021Q4

REPORT INFORMATION
  Report Type: Spontaneous
  Country: CL (occurrence: CL)
  Receive Date: 20211118
  Receipt Date: 20211118
  Transmission Date: 20220303
  Serious: No
  Sender: FDA-Public Use
  Company Number: CL-PFIZER INC-202101417949

PATIENT
  Age: 7 Year
  Sex: Male

DRUGS (1)
  1. GENOTROPIN [Suspect]
     Active Substance: SOMATROPIN
     Indication: Blood growth hormone

REACTIONS (3)
  - Drug dose omission by device [Unknown]
  - Product preparation error [Unknown]
  - Product selection error [Unknown]

NARRATIVE: CASE EVENT DATE: 20211020
